FAERS Safety Report 8419011-4 (Version None)
Quarter: 2012Q2

REPORT INFORMATION
  Report Type: 
  Country: None (occurrence: None)
  Receive Date: 20120601
  Receipt Date: 20120523
  Transmission Date: 20120825
  Serious: Yes (Death, Hospitalization)
  Sender: FDA-Public Use
  Company Number: UTC-019215

PATIENT
  Age: 60 Year
  Sex: Male

DRUGS (6)
  1. DIGOXIN [Concomitant]
  2. COUMADIN [Concomitant]
  3. TORESEMIDE (TORASEMIDE) [Concomitant]
  4. REMODULIN [Suspect]
     Indication: PULMONARY ARTERIAL HYPERTENSION
     Dosage: 15.912 UG/KG (0.01105 UG/KG, 1 IN 1 MIN), SUBCUTANEOUS, (1 IN 1 MIN)
     Route: 058
     Dates: start: 20120101
  5. REMODULIN [Suspect]
     Indication: PULMONARY ARTERIAL HYPERTENSION
     Dosage: 15.912 UG/KG (0.01105 UG/KG, 1 IN 1 MIN), SUBCUTANEOUS, (1 IN 1 MIN)
     Route: 058
     Dates: start: 20120311
  6. SPIRONOLACTONE [Concomitant]

REACTIONS (1)
  - SUBARACHNOID HAEMORRHAGE [None]
